FAERS Safety Report 21344767 (Version 1)
Quarter: 2022Q3

REPORT INFORMATION
  Report Type: Spontaneous
  Country: US (occurrence: US)
  Receive Date: 20220916
  Receipt Date: 20220916
  Transmission Date: 20221027
  Serious: Yes (Other)
  Sender: FDA-Public Use
  Company Number: US-PFIZER INC-202201160884

PATIENT
  Age: 72 Year
  Sex: Female
  Weight: 80.47 kg

DRUGS (2)
  1. CYTOMEL [Suspect]
     Active Substance: LIOTHYRONINE SODIUM
     Dosage: 5 MG
     Dates: start: 2012
  2. CYTOMEL [Suspect]
     Active Substance: LIOTHYRONINE SODIUM
     Dosage: 5 MG (DOUBLED UP)

REACTIONS (3)
  - Cholecystectomy [Unknown]
  - Feeling abnormal [Unknown]
  - Wrong strength [Unknown]
